FAERS Safety Report 5876820-3 (Version None)
Quarter: 2008Q3

REPORT INFORMATION
  Report Type: 
  Country: None (occurrence: None)
  Receive Date: 20080908
  Receipt Date: 20080908
  Transmission Date: 20090109
  Serious: Yes (Death)
  Sender: FDA-Public Use
  Company Number: None

PATIENT
  Age: 27 Year
  Sex: Male
  Weight: 108.8633 kg

DRUGS (2)
  1. METHADONE HCL [Suspect]
     Indication: BACK PAIN
     Dosage: 1 TABLET 3 TIMES DAILY PO
     Route: 048
     Dates: start: 20071201, end: 20080616
  2. XANAX [Suspect]
     Indication: PANIC ATTACK
     Dosage: 1 TABLET 2 TIMES DAILY PO
     Route: 048
     Dates: start: 20071201, end: 20080617

REACTIONS (1)
  - DEATH [None]
